FAERS Safety Report 16728991 (Version 1)
Quarter: 2019Q4

REPORT INFORMATION
  Report Type: Spontaneous
  Country: US (occurrence: US)
  Receive Date: 20190821
  Receipt Date: 20190821
  Transmission Date: 20200122
  Serious: Yes (Life-Threatening, Hospitalization)
  Sender: FDA-Public Use
  Company Number: None

PATIENT
  Sex: Male

DRUGS (2)
  1. METHOTREXATE. [Concomitant]
     Active Substance: METHOTREXATE
     Dates: start: 20190716, end: 20190716
  2. METHOTREXATE. [Suspect]
     Active Substance: METHOTREXATE
     Route: 037

REACTIONS (2)
  - Status epilepticus [None]
  - Toxicity to various agents [None]

NARRATIVE: CASE EVENT DATE: 20190721
